FAERS Safety Report 20862180 (Version 1)
Quarter: 2022Q2

REPORT INFORMATION
  Report Type: Spontaneous
  Country: US (occurrence: None)
  Receive Date: 20220522
  Receipt Date: 20220522
  Transmission Date: 20220721
  Serious: Yes (Disabling, Other)
  Sender: FDA-Public Use
  Company Number: None

PATIENT
  Age: 36 Year
  Sex: Female

DRUGS (1)
  1. SUBOXONE [Suspect]
     Active Substance: BUPRENORPHINE HYDROCHLORIDE\NALOXONE HYDROCHLORIDE
     Indication: Drug dependence
     Dosage: FREQUENCY : TWICE A DAY;?
     Route: 060
     Dates: start: 20160101, end: 20210101

REACTIONS (8)
  - Gingival bleeding [None]
  - Gingival bleeding [None]
  - Obsessive thoughts [None]
  - Gingival atrophy [None]
  - Mental disorder [None]
  - Agoraphobia [None]
  - Stress [None]
  - Dental operation [None]

NARRATIVE: CASE EVENT DATE: 20201201
